FAERS Safety Report 25764441 (Version 1)
Quarter: 2025Q3

REPORT INFORMATION
  Report Type: Spontaneous
  Country: US (occurrence: US)
  Receive Date: 20250905
  Receipt Date: 20250905
  Transmission Date: 20251020
  Serious: No
  Sender: DOMPE FARMACEUTICI
  Company Number: US-FARMAPROD-202501-0104

PATIENT
  Age: 78 Year
  Sex: Female

DRUGS (14)
  1. OXERVATE [Suspect]
     Active Substance: CENEGERMIN-BKBJ
     Indication: Neurotrophic keratopathy
     Route: 047
     Dates: start: 20241230
  2. OXERVATE [Suspect]
     Active Substance: CENEGERMIN-BKBJ
  3. REFRESH TEARS [Concomitant]
     Active Substance: CARBOXYMETHYLCELLULOSE SODIUM
  4. CINNAMON [CINNAMOMUM BURMANNI;CINNAMOMUM SPP.] [Concomitant]
  5. GARLIC [Concomitant]
     Active Substance: GARLIC
  6. VITAMIN D3 [Concomitant]
     Active Substance: CHOLECALCIFEROL
  7. PROBIOTIC 10 BILLION DAILY MAINTENANCE [Concomitant]
  8. FLAXSEED [Concomitant]
     Active Substance: FLAX SEED
  9. CITRACAL + D3 [Concomitant]
  10. IBANDRONATE SODIUM [Concomitant]
     Active Substance: IBANDRONATE SODIUM
  11. VALACYCLOVIR [Concomitant]
     Active Substance: VALACYCLOVIR HYDROCHLORIDE
  12. METOPROLOL SUCCINATE [Concomitant]
     Active Substance: METOPROLOL SUCCINATE
  13. ELIQUIS [Concomitant]
     Active Substance: APIXABAN
  14. PRED FORTE [Concomitant]
     Active Substance: PREDNISOLONE ACETATE

REACTIONS (5)
  - Lacrimation increased [Unknown]
  - Product dose omission issue [Unknown]
  - Pain [Unknown]
  - Foreign body sensation in eyes [Unknown]
  - Photophobia [Unknown]

NARRATIVE: CASE EVENT DATE: 20250129
